FAERS Safety Report 5327554-5 (Version None)
Quarter: 2007Q2

REPORT INFORMATION
  Report Type: 
  Country: None (occurrence: None)
  Receive Date: 20070517
  Receipt Date: 20070131
  Transmission Date: 20071010
  Serious: Yes (Other)
  Sender: FDA-Public Use
  Company Number: US-JNJFOC-20070104408

PATIENT
  Age: 95 Year
  Sex: Female

DRUGS (12)
  1. TRAMADOL HCL [Suspect]
     Indication: PAIN
     Route: 048
  2. CARBAMAZEPINE [Suspect]
     Indication: PAIN
     Route: 048
  3. CARBAMAZEPINE [Suspect]
     Indication: TRIGEMINAL NEURALGIA
     Route: 048
  4. NYSTATIN [Concomitant]
     Route: 048
  5. ANTICONVULSANT [Concomitant]
     Indication: DRUG USE FOR UNKNOWN INDICATION
     Route: 048
  6. CALCIUM ANTAGONISTS [Concomitant]
     Route: 065
  7. MULTI-VITAMIN [Concomitant]
     Route: 048
  8. CALCIUM AND CALCIUM SALTS [Concomitant]
     Route: 065
  9. VITAMIN B-12 [Concomitant]
     Route: 065
  10. BETA BLOCKERS [Concomitant]
     Route: 065
  11. ANTIDEPRESSANTS [Concomitant]
     Route: 065
  12. OXYCODONE/ACETAMINOPHEN [Concomitant]
     Route: 065

REACTIONS (8)
  - ASTHENIA [None]
  - BALANCE DISORDER [None]
  - CONFUSIONAL STATE [None]
  - COORDINATION ABNORMAL [None]
  - DECREASED APPETITE [None]
  - DEPRESSED LEVEL OF CONSCIOUSNESS [None]
  - HYPERSOMNIA [None]
  - TREMOR [None]
